FAERS Safety Report 5919382-4 (Version None)
Quarter: 2008Q4

REPORT INFORMATION
  Report Type: 
  Country: None (occurrence: None)
  Receive Date: 20081015
  Receipt Date: 20081013
  Transmission Date: 20090506
  Serious: Yes (Death, Hospitalization)
  Sender: FDA-Public Use
  Company Number: B0539583A

PATIENT
  Age: 50 Year
  Sex: Male

DRUGS (1)
  1. HYCAMTIN [Suspect]
     Dosage: 2.3MGM2 PER DAY
     Route: 048

REACTIONS (6)
  - DIARRHOEA [None]
  - PANCYTOPENIA [None]
  - PYREXIA [None]
  - RENAL FAILURE [None]
  - SEPTIC SHOCK [None]
  - WHITE BLOOD CELL COUNT DECREASED [None]
